FAERS Safety Report 11132173 (Version 3)
Quarter: 2015Q3

REPORT INFORMATION
  Report Type: Spontaneous
  Country: US (occurrence: US)
  Receive Date: 20150522
  Receipt Date: 20150714
  Transmission Date: 20151125
  Serious: Yes (Hospitalization, Other)
  Sender: FDA-Public Use
  Company Number: US-BAYER-2015-258613

PATIENT
  Age: 23 Year
  Sex: Female
  Weight: 68.93 kg

DRUGS (1)
  1. MIRENA [Suspect]
     Active Substance: LEVONORGESTREL
     Indication: CONTRACEPTION
     Dosage: 20 MCG/24HR, CONT
     Route: 015
     Dates: start: 20080702, end: 20150401

REACTIONS (11)
  - Device use error [None]
  - Sinusitis [None]
  - Pregnancy with contraceptive device [None]
  - Drug ineffective [None]
  - Pelvic pain [None]
  - Pain [None]
  - Abortion spontaneous [None]
  - Injury [None]
  - Device issue [None]
  - Uterine perforation [None]
  - Abdominal pain [None]

NARRATIVE: CASE EVENT DATE: 20080731
